FAERS Safety Report 20650532 (Version 1)
Quarter: 2022Q1

REPORT INFORMATION
  Report Type: Spontaneous
  Country: US (occurrence: US)
  Receive Date: 20220329
  Receipt Date: 20220329
  Transmission Date: 20220423
  Serious: Yes (Other)
  Sender: FDA-Public Use
  Company Number: US-TEVA-2022-US-2021435

PATIENT
  Age: 16 Year
  Sex: Female

DRUGS (51)
  1. AZITHROMYCIN [Suspect]
     Active Substance: AZITHROMYCIN
     Indication: Bartonellosis
     Dosage: 500 MILLIGRAM DAILY;
     Route: 065
  2. AZITHROMYCIN [Suspect]
     Active Substance: AZITHROMYCIN
     Indication: Borrelia infection
  3. DOXYCYCLINE [Suspect]
     Active Substance: DOXYCYCLINE
     Indication: Bartonellosis
     Dosage: 200 MILLIGRAM DAILY;
     Route: 065
  4. DOXYCYCLINE [Suspect]
     Active Substance: DOXYCYCLINE
     Indication: Borrelia infection
  5. LORATADINE [Suspect]
     Active Substance: LORATADINE
     Indication: Mast cell activation syndrome
     Route: 065
  6. FEXOFENADINE [Suspect]
     Active Substance: FEXOFENADINE HYDROCHLORIDE
     Indication: Mast cell activation syndrome
     Route: 065
  7. FAMOTIDINE [Suspect]
     Active Substance: FAMOTIDINE
     Indication: Mast cell activation syndrome
     Route: 065
  8. LEVOCETIRIZINE [Suspect]
     Active Substance: LEVOCETIRIZINE
     Indication: Mast cell activation syndrome
     Route: 065
  9. HYDROXYZINE [Suspect]
     Active Substance: HYDROXYZINE HYDROCHLORIDE
     Indication: Mast cell activation syndrome
     Route: 065
  10. CETIRIZINE [Suspect]
     Active Substance: CETIRIZINE HYDROCHLORIDE
     Indication: Mast cell activation syndrome
     Route: 065
  11. CELECOXIB [Suspect]
     Active Substance: CELECOXIB
     Indication: Mast cell activation syndrome
     Dosage: 100 MILLIGRAM DAILY;
     Route: 065
  12. CELECOXIB [Suspect]
     Active Substance: CELECOXIB
     Indication: Mast cell activation syndrome
     Dosage: 200 MILLIGRAM DAILY;
     Route: 065
  13. CLARITHROMYCIN [Suspect]
     Active Substance: CLARITHROMYCIN
     Indication: Cat scratch disease
     Route: 048
  14. CLARITHROMYCIN [Suspect]
     Active Substance: CLARITHROMYCIN
     Indication: Babesiosis
  15. HYDROXYCHLOROQUINE [Suspect]
     Active Substance: HYDROXYCHLOROQUINE
     Indication: Cat scratch disease
     Route: 048
  16. HYDROXYCHLOROQUINE [Suspect]
     Active Substance: HYDROXYCHLOROQUINE
     Indication: Babesiosis
  17. MINOCYCLINE [Suspect]
     Active Substance: MINOCYCLINE HYDROCHLORIDE
     Indication: Cat scratch disease
     Route: 048
  18. MINOCYCLINE [Suspect]
     Active Substance: MINOCYCLINE HYDROCHLORIDE
     Indication: Babesiosis
  19. LAMOTRIGINE [Suspect]
     Active Substance: LAMOTRIGINE
     Indication: Obsessive-compulsive disorder
     Route: 065
  20. CEFUROXIME [Suspect]
     Active Substance: CEFUROXIME
     Indication: Bartonellosis
     Dosage: 1000 MILLIGRAM DAILY;
     Route: 065
  21. CEFUROXIME [Suspect]
     Active Substance: CEFUROXIME
     Indication: Borrelia infection
  22. DIPHENHYDRAMINE [Suspect]
     Active Substance: DIPHENHYDRAMINE
     Indication: Mast cell activation syndrome
     Route: 065
  23. RANITIDINE [Suspect]
     Active Substance: RANITIDINE
     Indication: Mast cell activation syndrome
     Route: 065
  24. CROMOLYN [Suspect]
     Active Substance: CROMOLYN
     Indication: Mast cell activation syndrome
     Route: 048
  25. KETOTIFEN [Suspect]
     Active Substance: KETOTIFEN
     Indication: Mast cell activation syndrome
     Dosage: 2 MILLIGRAM DAILY;
     Route: 065
  26. KETOTIFEN [Suspect]
     Active Substance: KETOTIFEN
     Route: 065
  27. NALTREXONE [Suspect]
     Active Substance: NALTREXONE
     Indication: Mast cell activation syndrome
     Dosage: LOW DOSE, UP TO 3 MG ONCE DAILY
     Route: 065
  28. IMATINIB [Suspect]
     Active Substance: IMATINIB
     Indication: Mast cell activation syndrome
     Dosage: 100 MILLIGRAM DAILY; LOW DOSE
     Route: 065
  29. MONTELUKAST [Suspect]
     Active Substance: MONTELUKAST SODIUM
     Indication: Mast cell activation syndrome
     Route: 065
  30. GLEEVEC [Suspect]
     Active Substance: IMATINIB MESYLATE
     Indication: Mast cell activation syndrome
     Dosage: LOW-DOSE
     Route: 065
  31. RIFAMPIN [Suspect]
     Active Substance: RIFAMPIN
     Indication: Cat scratch disease
     Route: 048
  32. RIFAMPIN [Suspect]
     Active Substance: RIFAMPIN
     Indication: Babesiosis
  33. SULFAMETHOXAZOLE\TRIMETHOPRIM [Suspect]
     Active Substance: SULFAMETHOXAZOLE\TRIMETHOPRIM
     Indication: Cat scratch disease
     Route: 048
  34. SULFAMETHOXAZOLE\TRIMETHOPRIM [Suspect]
     Active Substance: SULFAMETHOXAZOLE\TRIMETHOPRIM
     Indication: Babesiosis
  35. VILAZODONE [Suspect]
     Active Substance: VILAZODONE
     Indication: Obsessive-compulsive disorder
     Route: 065
  36. LURASIDONE [Suspect]
     Active Substance: LURASIDONE
     Indication: Obsessive-compulsive disorder
     Route: 065
  37. CEFTRIAXONE [Concomitant]
     Active Substance: CEFTRIAXONE
     Indication: Lyme disease
     Route: 042
  38. CEFTRIAXONE [Concomitant]
     Active Substance: CEFTRIAXONE
     Indication: Borrelia infection
     Dosage: 2 GRAM DAILY;
     Route: 042
  39. PROPRANOLOL [Concomitant]
     Active Substance: PROPRANOLOL HYDROCHLORIDE
     Indication: Postural orthostatic tachycardia syndrome
     Route: 065
  40. ATOVAQUONE [Concomitant]
     Active Substance: ATOVAQUONE
     Indication: Bartonellosis
     Dosage: 500 MILLIGRAM DAILY;
     Route: 048
  41. ATOVAQUONE [Concomitant]
     Active Substance: ATOVAQUONE
     Indication: Borrelia infection
  42. PROGUANIL [Concomitant]
     Active Substance: PROGUANIL
     Indication: Bartonellosis
     Dosage: 200 MILLIGRAM DAILY;
     Route: 048
  43. PROGUANIL [Concomitant]
     Active Substance: PROGUANIL
     Indication: Borrelia infection
  44. NORTRIPTYLINE [Concomitant]
     Active Substance: NORTRIPTYLINE
     Indication: Constipation
     Dosage: 30 MILLIGRAM DAILY;
     Route: 065
  45. BUPROPION [Concomitant]
     Active Substance: BUPROPION
     Indication: Product used for unknown indication
     Route: 065
  46. BPC-157 [Concomitant]
     Active Substance: BPC-157
     Indication: Constipation
     Route: 065
  47. COFFEE [Concomitant]
     Active Substance: ARABICA COFFEE BEAN\COFFEE BEAN
     Indication: Constipation
     Dosage: ENEMAS
     Route: 054
  48. HUMAN IMMUNOGLOBULIN G [Concomitant]
     Active Substance: HUMAN IMMUNOGLOBULIN G
     Indication: Chronic inflammatory demyelinating polyradiculoneuropathy
     Dosage: 2 G/KG OVER TWO DAYS PER MONTH
     Route: 042
  49. PROGESTERONE [Concomitant]
     Active Substance: PROGESTERONE
     Indication: Mast cell activation syndrome
     Dosage: 100 MILLIGRAM DAILY;
     Route: 048
  50. PROGESTERONE [Concomitant]
     Active Substance: PROGESTERONE
     Dosage: 200 MILLIGRAM DAILY;
     Route: 048
  51. PRUCALOPRIDE [Concomitant]
     Active Substance: PRUCALOPRIDE
     Indication: Mast cell activation syndrome
     Route: 065

REACTIONS (5)
  - Cerebral disorder [Unknown]
  - Feeling abnormal [Unknown]
  - Obsessive-compulsive disorder [Unknown]
  - Depression [Unknown]
  - Drug ineffective [Unknown]
